FAERS Safety Report 7979336-3 (Version None)
Quarter: 2011Q4

REPORT INFORMATION
  Report Type: 
  Country: None (occurrence: None)
  Receive Date: 20111214
  Receipt Date: 20111208
  Transmission Date: 20120403
  Serious: Yes (Hospitalization)
  Sender: FDA-Public Use
  Company Number: IN-AMGEN-INDCT2011046216

PATIENT
  Age: 39 Year
  Sex: Female
  Weight: 59 kg

DRUGS (5)
  1. PERINORM [Concomitant]
     Indication: VOMITING
     Dosage: UNK
     Route: 048
     Dates: start: 20110809, end: 20110830
  2. TRAMADOL HCL [Concomitant]
     Indication: PROCTALGIA
     Dosage: UNK
     Route: 042
     Dates: start: 20110804, end: 20110901
  3. PANITUMUMAB [Suspect]
     Indication: COLORECTAL CANCER METASTATIC
     Dosage: 348 MG, UNK
     Dates: start: 20110808
  4. RABLET [Concomitant]
     Indication: GASTROOESOPHAGEAL REFLUX DISEASE
     Dosage: UNK
     Route: 048
     Dates: start: 20110809, end: 20110830
  5. DOMSTAL [Concomitant]
     Indication: NAUSEA
     Dosage: UNK
     Route: 048
     Dates: start: 20110809, end: 20110830

REACTIONS (1)
  - URINARY TRACT INFECTION [None]
